FAERS Safety Report 8236954-5 (Version None)
Quarter: 2012Q1

REPORT INFORMATION
  Report Type: 
  Country: None (occurrence: None)
  Receive Date: 20120327
  Receipt Date: 20120315
  Transmission Date: 20120608
  Serious: Yes (Other)
  Sender: FDA-Public Use
  Company Number: PHHY2012JP017964

PATIENT
  Sex: Male
  Weight: 45 kg

DRUGS (7)
  1. NEO-MERCAZOLE TAB [Concomitant]
     Indication: BASEDOW'S DISEASE
     Dosage: 40 MG, UNK
     Route: 048
  2. DEPAS [Concomitant]
     Indication: INSOMNIA
     Route: 048
     Dates: start: 20110812
  3. EPINASTINE HYDROCHLORIDE [Concomitant]
     Indication: RHINITIS ALLERGIC
     Dosage: 20 MG, UNK
     Route: 048
  4. TEGRETOL [Suspect]
     Indication: BIPOLAR DISORDER
     Dosage: 200 MG, BID
     Route: 048
     Dates: start: 20120106, end: 20120202
  5. TEGRETOL [Suspect]
     Route: 048
     Dates: start: 20120203, end: 20120224
  6. PRIMPERAN TAB [Concomitant]
     Indication: NAUSEA
     Route: 048
     Dates: start: 20111209
  7. EBASTINE [Concomitant]
     Indication: RHINITIS ALLERGIC
     Dosage: 10 MG, UNK
     Route: 048

REACTIONS (13)
  - OEDEMA MUCOSAL [None]
  - DYSGEUSIA [None]
  - EYE DISCHARGE [None]
  - ORAL PAIN [None]
  - TONGUE BLISTERING [None]
  - SWELLING FACE [None]
  - APHAGIA [None]
  - BURNING SENSATION MUCOSAL [None]
  - SWOLLEN TONGUE [None]
  - SKIN SWELLING [None]
  - LACRIMATION INCREASED [None]
  - OEDEMA MOUTH [None]
  - DYSKINESIA [None]
